FAERS Safety Report 13570723 (Version 1)
Quarter: 2017Q2

REPORT INFORMATION
  Report Type: Spontaneous
  Country: US (occurrence: US)
  Receive Date: 20170523
  Receipt Date: 20170523
  Transmission Date: 20170830
  Serious: No
  Sender: FDA-Public Use
  Company Number: US-BAUSCH-BL-2016-031783

PATIENT
  Age: 18 Year
  Sex: Female

DRUGS (2)
  1. MESTINON [Suspect]
     Active Substance: PYRIDOSTIGMINE BROMIDE
     Indication: POSTURAL ORTHOSTATIC TACHYCARDIA SYNDROME
  2. MESTINON [Suspect]
     Active Substance: PYRIDOSTIGMINE BROMIDE
     Indication: EHLERS-DANLOS SYNDROME
     Route: 048
     Dates: start: 201609, end: 201610

REACTIONS (3)
  - Drug ineffective [Unknown]
  - Expired product administered [Unknown]
  - Off label use [Unknown]

NARRATIVE: CASE EVENT DATE: 201609
